FAERS Safety Report 16834942 (Version 6)
Quarter: 2021Q4

REPORT INFORMATION
  Report Type: Spontaneous
  Country: US (occurrence: US)
  Receive Date: 20190920
  Receipt Date: 20211001
  Transmission Date: 20220303
  Serious: Yes (Disabling)
  Sender: FDA-Public Use
  Company Number: US-TEVA-2019-US-1110215

PATIENT
  Age: 65 Year
  Sex: Female
  Weight: 113.39 kg

DRUGS (12)
  1. DOCETAXEL [Suspect]
     Active Substance: DOCETAXEL
     Indication: Breast cancer female
     Dosage: NUMBER OF CYCLES : 6, FREQUENCY - EVERY THREE WEEKS, DOSE: 75 MG/M2
     Route: 042
     Dates: start: 20131219, end: 20140408
  2. CARBOPLATIN [Suspect]
     Active Substance: CARBOPLATIN
     Indication: Breast cancer female
     Dosage: NUMBER OF CYCLES : 6, FREQUENCY - EVERY THREE WEEKS
     Route: 042
     Dates: start: 20131219, end: 20140408
  3. DOCETAXEL [Suspect]
     Active Substance: DOCETAXEL
     Indication: Breast cancer female
     Dosage: NUMBER OF CYCLES : 6, FREQUENCY - EVERY THREE WEEKS, DOSE: 75 MG/M2
     Route: 042
     Dates: start: 20131219, end: 20140408
  4. DOCETAXEL [Suspect]
     Active Substance: DOCETAXEL
     Indication: Breast cancer female
     Dosage: NUMBER OF CYCLES : 6, FREQUENCY - EVERY THREE WEEKS, DOSE: 75 MG/M2
     Route: 042
     Dates: start: 20131219, end: 20140408
  5. HERCEPTIN [Suspect]
     Active Substance: TRASTUZUMAB
     Indication: Breast cancer female
     Dosage: NUMBER OF CYCLES : 6, FREQUENCY - EVERY THREE WEEKS
     Route: 042
     Dates: start: 20131219, end: 20140408
  6. ZOFRAN [Suspect]
     Active Substance: ONDANSETRON HYDROCHLORIDE
     Indication: Breast cancer female
     Dosage: NUMBER OF CYCLES : 6, FREQUENCY - EVERY THREE WEEKS
     Route: 042
     Dates: start: 20131219, end: 20140408
  7. DECADRON [Suspect]
     Active Substance: DEXAMETHASONE
     Indication: Breast cancer female
     Dosage: NUMBER OF CYCLES : 6, FREQUENCY - EVERY THREE WEEKS
     Route: 042
     Dates: start: 20131219, end: 20140408
  8. PEGFILGRASTIM [Concomitant]
     Active Substance: PEGFILGRASTIM
     Dosage: ON DAY 2
     Route: 058
  9. COMPAZINE [Concomitant]
     Active Substance: PROCHLORPERAZINE MALEATE
     Indication: Nausea
     Dosage: EVERY 6 HOURS PRN
     Route: 048
  10. COMPAZINE [Concomitant]
     Active Substance: PROCHLORPERAZINE MALEATE
     Indication: Vomiting
  11. EXFORGE [Concomitant]
     Active Substance: AMLODIPINE BESYLATE\VALSARTAN
     Dosage: 10 MG-320 MG ORAL TABLET-1 TAB, PO, QDAY,
     Route: 048
  12. FLONASE [Concomitant]
     Active Substance: FLUTICASONE PROPIONATE
     Route: 065

REACTIONS (8)
  - Alopecia areata [Not Recovered/Not Resolved]
  - Madarosis [Not Recovered/Not Resolved]
  - Hair texture abnormal [Not Recovered/Not Resolved]
  - Hair colour changes [Not Recovered/Not Resolved]
  - Fatigue [Unknown]
  - Nausea [Unknown]
  - Diarrhoea [Unknown]
  - Abdominal pain [Unknown]

NARRATIVE: CASE EVENT DATE: 20141229
